FAERS Safety Report 9500022 (Version 1)
Quarter: 2013Q3

REPORT INFORMATION
  Report Type: Spontaneous
  Country: US (occurrence: US)
  Receive Date: 20130905
  Receipt Date: 20130905
  Transmission Date: 20140515
  Serious: No
  Sender: FDA-Public Use
  Company Number: US-PFIZER INC-2013252237

PATIENT
  Age: 4 Year
  Sex: Male
  Weight: 13.61 kg

DRUGS (3)
  1. CHILDREN^S MOTRIN [Suspect]
     Indication: PYREXIA
     Dosage: 1 TEASPOON, TWICE A DAY
     Route: 048
     Dates: start: 20130205, end: 20130208
  2. CHILDREN^S MOTRIN [Suspect]
     Indication: COUGH
  3. CHILDREN^S MOTRIN [Suspect]
     Indication: RHINORRHOEA

REACTIONS (3)
  - Inappropriate schedule of drug administration [Unknown]
  - Psychomotor hyperactivity [Recovering/Resolving]
  - Nervousness [Unknown]
